FAERS Safety Report 6923208-X (Version None)
Quarter: 2010Q3

REPORT INFORMATION
  Report Type: 
  Country: None (occurrence: None)
  Receive Date: 20100813
  Receipt Date: 20100806
  Transmission Date: 20110219
  Serious: Yes (Other)
  Sender: FDA-Public Use
  Company Number: US-ROCHE-715941

PATIENT
  Sex: Male
  Weight: 73.5 kg

DRUGS (8)
  1. PEGINTERFERON ALFA-2A [Suspect]
     Indication: HEPATITIS C
     Dosage: FORM: PRE-FILLED SYRINGE, THERAPY SUSPENDED.
     Route: 058
     Dates: start: 20100612, end: 20100713
  2. RIBAVIRIN [Suspect]
     Indication: HEPATITIS C
     Dosage: DIVIDED DOSES, TAKEN IN MORNING AND IN THE EVENING.
     Route: 048
     Dates: start: 20100612
  3. RIBAVIRIN [Suspect]
     Dosage: DOSE REDUCED, THERAPY SUSPENDED.
     Route: 048
     Dates: end: 20100713
  4. CELLCEPT [Concomitant]
  5. PREDNISONE [Concomitant]
     Indication: LIVER TRANSPLANT
  6. PROGRAF [Concomitant]
     Indication: LIVER TRANSPLANT
  7. SEPTRA [Concomitant]
  8. PRILOSEC [Concomitant]

REACTIONS (7)
  - ASTHENIA [None]
  - DIZZINESS [None]
  - HAEMOGLOBIN DECREASED [None]
  - RETINAL HAEMORRHAGE [None]
  - SPLENOMEGALY [None]
  - VISION BLURRED [None]
  - WHITE BLOOD CELL COUNT DECREASED [None]
